FAERS Safety Report 19548236 (Version 1)
Quarter: 2021Q3

REPORT INFORMATION
  Report Type: Spontaneous
  Country: DE (occurrence: DE)
  Receive Date: 20210714
  Receipt Date: 20210714
  Transmission Date: 20211014
  Serious: Yes (Hospitalization)
  Sender: FDA-Public Use
  Company Number: DE-SUN PHARMACEUTICAL INDUSTRIES LTD-2021RR-304224

PATIENT
  Age: 57 Year
  Sex: Female
  Weight: 74 kg

DRUGS (7)
  1. ATORVASTATIN [Suspect]
     Active Substance: ATORVASTATIN
     Indication: PRODUCT USED FOR UNKNOWN INDICATION
     Dosage: 80 MG, 0?0?1?0, TABLETTEN
     Route: 048
  2. LEVOTHYROXIN?NATRIUM [Concomitant]
     Active Substance: LEVOTHYROXINE SODIUM
     Indication: PRODUCT USED FOR UNKNOWN INDICATION
     Dosage: 0.15 MG, 1?0?0?0, TABLETTEN
     Route: 048
  3. METOPROLOL. [Concomitant]
     Active Substance: METOPROLOL
     Indication: PRODUCT USED FOR UNKNOWN INDICATION
     Dosage: 47.5 MG, 0.5?0?0.5?0, RETARD?TABLETTEN
     Route: 048
  4. RANOLAZIN [Suspect]
     Active Substance: RANOLAZINE
     Indication: PRODUCT USED FOR UNKNOWN INDICATION
     Dosage: 375 MG, 0?0?1?0, RETARD?TABLETTEN
     Route: 048
  5. EISEN(II)?KOMPLEX [Concomitant]
     Indication: PRODUCT USED FOR UNKNOWN INDICATION
     Dosage: 100 MG, 1?0?0?0, RETARD?KAPSELN
     Route: 048
  6. PANTOPRAZOL [Concomitant]
     Active Substance: PANTOPRAZOLE SODIUM
     Indication: PRODUCT USED FOR UNKNOWN INDICATION
     Dosage: 20 MG, 0?0?1?0, RETARD?TABLETTEN
     Route: 048
  7. ACETYLSALICYLSAEURE [Concomitant]
     Active Substance: ASPIRIN
     Indication: PRODUCT USED FOR UNKNOWN INDICATION
     Dosage: 100 MG, 0?1?0?0, TABLETTEN
     Route: 048

REACTIONS (7)
  - Faeces pale [Unknown]
  - Ocular icterus [Unknown]
  - Labelled drug-drug interaction medication error [Unknown]
  - Abdominal pain [Unknown]
  - Chromaturia [Unknown]
  - Muscle spasms [Unknown]
  - Liver function test abnormal [Unknown]
